FAERS Safety Report 11398710 (Version 2)
Quarter: 2017Q1

REPORT INFORMATION
  Report Type: Spontaneous
  Country: US (occurrence: US)
  Receive Date: 20150820
  Receipt Date: 20170227
  Transmission Date: 20170428
  Serious: Yes (Hospitalization, Other)
  Sender: FDA-Public Use
  Company Number: US-ELI_LILLY_AND_COMPANY-US201508003687

PATIENT
  Sex: Female

DRUGS (2)
  1. CYMBALTA [Suspect]
     Active Substance: DULOXETINE HYDROCHLORIDE
     Indication: PAIN
     Dosage: 90 MG, QD
     Route: 048
     Dates: start: 20121109
  2. CYMBALTA [Suspect]
     Active Substance: DULOXETINE HYDROCHLORIDE
     Indication: DEPRESSION
     Dosage: 60 MG, QD
     Route: 065
     Dates: start: 20120821, end: 20120928

REACTIONS (25)
  - Insomnia [Unknown]
  - Suicidal ideation [Unknown]
  - Affect lability [Unknown]
  - Nausea [Unknown]
  - Confusional state [Unknown]
  - Agitation [Unknown]
  - Irritability [Unknown]
  - Mood swings [Unknown]
  - Panic attack [Unknown]
  - Drug withdrawal syndrome [Unknown]
  - Muscle spasms [Unknown]
  - Vomiting [Unknown]
  - Fatigue [Unknown]
  - Hyperhidrosis [Unknown]
  - Diarrhoea [Unknown]
  - Disturbance in attention [Unknown]
  - Paraesthesia [Unknown]
  - Dizziness [Unknown]
  - Nightmare [Unknown]
  - Anxiety [Unknown]
  - Asthenia [Unknown]
  - Memory impairment [Unknown]
  - Influenza like illness [Unknown]
  - Dysphoria [Unknown]
  - Anger [Unknown]
